FAERS Safety Report 9576659 (Version 1)
Quarter: 2013Q4

REPORT INFORMATION
  Report Type: Spontaneous
  Country: US (occurrence: US)
  Receive Date: 20131001
  Receipt Date: 20131001
  Transmission Date: 20140711
  Serious: No
  Sender: FDA-Public Use
  Company Number: US-AMGEN-USASP2013003612

PATIENT
  Age: 51 Year
  Sex: Female
  Weight: 99.77 kg

DRUGS (10)
  1. ENBREL [Suspect]
     Indication: PRODUCT USED FOR UNKNOWN INDICATION
     Dosage: 50 MG, QWK
     Route: 058
  2. LEUCOVORIN CA [Concomitant]
     Dosage: 10 MG, UNK
  3. METHOTREXATE [Concomitant]
     Dosage: 2.5 MG, UNK
  4. ZYRTEC [Concomitant]
     Dosage: 10 MG, UNK
  5. FOLIC ACID [Concomitant]
     Dosage: 1 MG, UNK
  6. ALBUTEROL                          /00139501/ [Concomitant]
     Dosage: 90 MUG, UNK
  7. FLONASE [Concomitant]
     Dosage: 0.05 %, UNK
  8. LIDODERM [Concomitant]
     Dosage: 5 %, UNK
  9. CALCIUM +D                         /00944201/ [Concomitant]
     Dosage: UNK
  10. PULMICORT [Concomitant]
     Dosage: 200 MUG, UNK

REACTIONS (1)
  - Sinusitis [Unknown]
